FAERS Safety Report 9657805 (Version 2)
Quarter: 2013Q4

REPORT INFORMATION
  Report Type: Report from Study
  Country: CA (occurrence: CA)
  Receive Date: 20131030
  Receipt Date: 20131106
  Transmission Date: 20140711
  Serious: Yes (Other)
  Sender: FDA-Public Use
  Company Number: CA-ABBVIE-13P-028-1162645-00

PATIENT
  Age: 40 Year
  Sex: Male
  Weight: 88.53 kg

DRUGS (3)
  1. HUMIRA [Suspect]
     Indication: CROHN^S DISEASE
     Route: 058
     Dates: start: 20121209, end: 2013
  2. HUMIRA [Suspect]
     Route: 058
     Dates: start: 2013
  3. 5-AMINOSALICYLIC ACID [Concomitant]
     Indication: CROHN^S DISEASE
     Route: 048
     Dates: start: 2008

REACTIONS (3)
  - Intestinal obstruction [Recovering/Resolving]
  - Pain [Recovering/Resolving]
  - Gastrointestinal infection [Recovering/Resolving]
